FAERS Safety Report 8576510-2 (Version None)
Quarter: 2012Q3

REPORT INFORMATION
  Report Type: 
  Country: None (occurrence: None)
  Receive Date: 20120725
  Receipt Date: 20120712
  Transmission Date: 20120928
  Serious: Yes (Hospitalization, Other)
  Sender: FDA-Public Use
  Company Number: CIP11000512

PATIENT
  Age: 76 Year
  Sex: Female
  Weight: 59.4 kg

DRUGS (17)
  1. ZOCOR [Concomitant]
  2. LIPITOR [Concomitant]
  3. METHYLPREDNISOLONE [Concomitant]
  4. VALSARTAN/HYDROCHLOROTHIAZIDE (HYDROCHLOROTHIAZIDE, VALSARTAN) [Concomitant]
  5. PREMARIN [Concomitant]
  6. AFEDITAB (NIFEDIPINE) [Concomitant]
  7. MEVACOR [Concomitant]
  8. KLOR-CON [Concomitant]
  9. AZITHROMYCIN [Concomitant]
  10. ACTONEL [Suspect]
     Indication: OSTEOPENIA
     Dosage: 35 MG ONCE WEEKLY, ORAL
     Route: 048
     Dates: start: 20050912, end: 20070101
  11. FOSAMAX [Suspect]
     Indication: OSTEOPENIA
     Dosage: 70 MG ONCE WEEKLY, ORAL
     Route: 048
     Dates: start: 20070101, end: 20100318
  12. AMBIEN [Concomitant]
  13. PLAVIX [Concomitant]
  14. CLARINEX /01398501/ (DESLORATADINE) [Concomitant]
  15. TRIAMCINOLONE [Concomitant]
  16. LEVAQUIN [Concomitant]
  17. ALLEGRA-D 12 HOUR [Concomitant]

REACTIONS (24)
  - LIMB DEFORMITY [None]
  - OEDEMA PERIPHERAL [None]
  - FEMUR FRACTURE [None]
  - GAIT DISTURBANCE [None]
  - POST PROCEDURAL HAEMORRHAGE [None]
  - INCISIONAL DRAINAGE [None]
  - NAUSEA [None]
  - VENOUS INSUFFICIENCY [None]
  - FALL [None]
  - ANAEMIA POSTOPERATIVE [None]
  - VOMITING [None]
  - DEPRESSION [None]
  - HYPOPHAGIA [None]
  - INCISION SITE HAEMATOMA [None]
  - INCISION SITE HAEMORRHAGE [None]
  - URINARY TRACT INFECTION [None]
  - PAIN IN EXTREMITY [None]
  - DYSPEPSIA [None]
  - FATIGUE [None]
  - PAIN [None]
  - PYREXIA [None]
  - PATELLOFEMORAL PAIN SYNDROME [None]
  - LIMB ASYMMETRY [None]
  - HYPOTENSION [None]
